APPROVED DRUG PRODUCT: MEMANTINE HYDROCHLORIDE
Active Ingredient: MEMANTINE HYDROCHLORIDE
Strength: 5MG
Dosage Form/Route: TABLET;ORAL
Application: A200022 | Product #001 | TE Code: AB
Applicant: UNICHEM LABORATORIES LTD
Approved: Oct 13, 2015 | RLD: No | RS: No | Type: RX